FAERS Safety Report 19061130 (Version 1)
Quarter: 2021Q1

REPORT INFORMATION
  Report Type: Spontaneous
  Country: US (occurrence: US)
  Receive Date: 20210326
  Receipt Date: 20210326
  Transmission Date: 20210420
  Serious: No
  Sender: FDA-Public Use
  Company Number: US-BIOGEN-2021BI00993100

PATIENT
  Sex: Female

DRUGS (29)
  1. POTASSIUM CHLORIDE. [Concomitant]
     Active Substance: POTASSIUM CHLORIDE
     Route: 065
  2. LIPITOR [Concomitant]
     Active Substance: ATORVASTATIN CALCIUM
     Route: 065
  3. AVONEX [Suspect]
     Active Substance: INTERFERON BETA-1A
  4. TRICOR [Concomitant]
     Active Substance: FENOFIBRATE
     Route: 065
  5. CELEXA [Concomitant]
     Active Substance: CITALOPRAM HYDROBROMIDE
     Route: 065
  6. VITAMIN K [Concomitant]
     Active Substance: PHYTONADIONE
     Route: 065
  7. AVONEX [Suspect]
     Active Substance: INTERFERON BETA-1A
  8. AVONEX [Suspect]
     Active Substance: INTERFERON BETA-1A
  9. CLARITIN [Concomitant]
     Active Substance: LORATADINE
     Route: 065
  10. COZAAR [Concomitant]
     Active Substance: LOSARTAN POTASSIUM
     Route: 065
  11. PROPRANOLOL [Concomitant]
     Active Substance: PROPRANOLOL HYDROCHLORIDE
     Route: 065
  12. METFORMIN [Concomitant]
     Active Substance: METFORMIN HYDROCHLORIDE
     Route: 065
  13. AVONEX [Suspect]
     Active Substance: INTERFERON BETA-1A
  14. AVONEX [Suspect]
     Active Substance: INTERFERON BETA-1A
  15. AVONEX [Suspect]
     Active Substance: INTERFERON BETA-1A
  16. COMBIVENT RESPIMAT [Concomitant]
     Active Substance: ALBUTEROL SULFATE\IPRATROPIUM BROMIDE
     Route: 065
  17. BACLOFEN. [Concomitant]
     Active Substance: BACLOFEN
     Route: 065
  18. AVONEX [Suspect]
     Active Substance: INTERFERON BETA-1A
  19. AVONEX [Suspect]
     Active Substance: INTERFERON BETA-1A
  20. AVONEX [Suspect]
     Active Substance: INTERFERON BETA-1A
  21. AVONEX [Suspect]
     Active Substance: INTERFERON BETA-1A
  22. VENTOLIN [Concomitant]
     Active Substance: ALBUTEROL SULFATE
     Route: 065
  23. AVONEX [Suspect]
     Active Substance: INTERFERON BETA-1A
     Indication: MULTIPLE SCLEROSIS
     Route: 065
  24. AVONEX [Suspect]
     Active Substance: INTERFERON BETA-1A
  25. FIORICET [Concomitant]
     Active Substance: ACETAMINOPHEN\BUTALBITAL\CAFFEINE
     Route: 065
  26. NAPROXEN. [Concomitant]
     Active Substance: NAPROXEN
     Route: 065
  27. AVONEX [Suspect]
     Active Substance: INTERFERON BETA-1A
  28. PRILOSEC [Concomitant]
     Active Substance: OMEPRAZOLE MAGNESIUM
     Route: 065
  29. VITAMIN D [Concomitant]
     Active Substance: VITAMIN D NOS
     Route: 065

REACTIONS (2)
  - Pain [Unknown]
  - Motor dysfunction [Unknown]
